FAERS Safety Report 4264571-0 (Version None)
Quarter: 2004Q1

REPORT INFORMATION
  Report Type: 
  Country: None (occurrence: None)
  Receive Date: 20040106
  Receipt Date: 20030829
  Transmission Date: 20041129
  Serious: Yes (Death, Life-Threatening, Hospitalization, Congenital Anomaly, Other)
  Sender: FDA-Public Use
  Company Number: WAES 0309USA00284B1

PATIENT
  Weight: 1 kg

DRUGS (4)
  1. DIAZEPAM [Concomitant]
     Dates: start: 19910116, end: 19910119
  2. INDOCIN [Suspect]
     Indication: PREMATURE LABOUR
     Dates: start: 19910116, end: 19910119
  3. MAGNESIUM SULFATE [Concomitant]
     Dates: start: 19910116, end: 19910119
  4. RITODRINE [Concomitant]
     Dates: start: 19910116, end: 19910119

REACTIONS (8)
  - CAESAREAN SECTION [None]
  - CLEFT LIP AND PALATE [None]
  - INTERCOSTAL RETRACTION [None]
  - PREMATURE BABY [None]
  - PULMONARY DYSMATURITY SYNDROME [None]
  - RENAL FAILURE ACUTE [None]
  - RENAL FAILURE NEONATAL [None]
  - RESPIRATORY FAILURE [None]
